FAERS Safety Report 23972073 (Version 1)
Quarter: 2024Q2

REPORT INFORMATION
  Report Type: Spontaneous
  Country: US (occurrence: None)
  Receive Date: 20240612
  Receipt Date: 20240612
  Transmission Date: 20240716
  Serious: Yes (Life-Threatening)
  Sender: FDA-Public Use
  Company Number: None

PATIENT
  Age: 47 Year
  Sex: Female
  Weight: 94.5 kg

DRUGS (1)
  1. SOLU-CORTEF [Suspect]
     Active Substance: HYDROCORTISONE SODIUM SUCCINATE
     Indication: Addison^s disease
     Dosage: 1 INJECTION AS NEEDED INTRAMUSCULAR
     Route: 030

REACTIONS (5)
  - Product packaging confusion [None]
  - Product label confusion [None]
  - Product appearance confusion [None]
  - Product barcode issue [None]
  - Product lot number issue [None]

NARRATIVE: CASE EVENT DATE: 20240607
